FAERS Safety Report 7824339-2 (Version None)
Quarter: 2011Q4

REPORT INFORMATION
  Report Type: 
  Country: None (occurrence: None)
  Receive Date: 20111019
  Receipt Date: 20111012
  Transmission Date: 20120403
  Serious: Yes (Hospitalization)
  Sender: FDA-Public Use
  Company Number: CA-BRISTOL-MYERS SQUIBB COMPANY-16162356

PATIENT
  Age: 56 Year
  Sex: Female

DRUGS (12)
  1. GLYCLAZIDE [Concomitant]
  2. ZOPICLONE [Concomitant]
  3. METFORMIN HCL [Concomitant]
  4. DEPO-MEDROL [Concomitant]
  5. SOTALOL HCL [Concomitant]
  6. METOPROLOL TARTRATE [Concomitant]
  7. ATORVASTATIN [Concomitant]
  8. ASPIRIN [Concomitant]
  9. LORAZEPAM [Concomitant]
  10. IRON [Concomitant]
     Dosage: PILL
  11. ORENCIA [Suspect]
     Indication: RHEUMATOID ARTHRITIS
     Dosage: NO OF INF:1
     Route: 042
     Dates: start: 20110919
  12. RABEPRAZOLE SODIUM [Concomitant]

REACTIONS (8)
  - NAUSEA [None]
  - COLD SWEAT [None]
  - MALAISE [None]
  - FATIGUE [None]
  - ASTHENIA [None]
  - PAIN [None]
  - CHILLS [None]
  - DYSPNOEA [None]
